FAERS Safety Report 14290512 (Version 1)
Quarter: 2017Q4

REPORT INFORMATION
  Report Type: Spontaneous
  Country: US (occurrence: US)
  Receive Date: 20171215
  Receipt Date: 20171215
  Transmission Date: 20180321
  Serious: No
  Sender: FDA-Public Use
  Company Number: None

PATIENT
  Sex: Female
  Weight: 58.95 kg

DRUGS (1)
  1. CIPROFLOXACIN HCL 250MG TAB DR. RE 55111-0126-01 [Suspect]
     Active Substance: CIPROFLOXACIN HYDROCHLORIDE
     Indication: URINARY TRACT INFECTION
     Dosage: ?          QUANTITY:14 TABLET(S);?
     Route: 048
     Dates: start: 20171211, end: 20171213

REACTIONS (9)
  - Respiration abnormal [None]
  - Depression [None]
  - Self esteem decreased [None]
  - Therapy change [None]
  - Thirst [None]
  - Skin exfoliation [None]
  - Feeling abnormal [None]
  - Nightmare [None]
  - Emotional disorder [None]

NARRATIVE: CASE EVENT DATE: 20171213
